FAERS Safety Report 5107057-3 (Version None)
Quarter: 2006Q3

REPORT INFORMATION
  Report Type: 
  Country: None (occurrence: None)
  Receive Date: 20060913
  Receipt Date: 20060828
  Transmission Date: 20061208
  Serious: Yes (Hospitalization, Disabling, Other)
  Sender: FDA-Public Use
  Company Number: US200607005397

PATIENT
  Age: 65 Year
  Sex: Female
  Weight: 71.7 kg

DRUGS (2)
  1. FORTEO [Suspect]
     Indication: OSTEOPOROSIS
     Dosage: 20 UG
     Dates: start: 20040101
  2. FORTEO [Concomitant]

REACTIONS (4)
  - FALL [None]
  - FEMUR FRACTURE [None]
  - IMMOBILE [None]
  - WRIST FRACTURE [None]
